FAERS Safety Report 6963943-0 (Version None)
Quarter: 2010Q3

REPORT INFORMATION
  Report Type: 
  Country: None (occurrence: None)
  Receive Date: 20100902
  Receipt Date: 20100825
  Transmission Date: 20110219
  Serious: Yes (Other)
  Sender: FDA-Public Use
  Company Number: US-AMGEN-QUU434485

PATIENT
  Sex: Female

DRUGS (3)
  1. NPLATE [Suspect]
     Indication: IDIOPATHIC THROMBOCYTOPENIC PURPURA
     Dates: start: 20090410, end: 20091214
  2. CORTICOSTEROIDS [Concomitant]
     Dates: start: 20090603, end: 20090620
  3. IMMU-G [Concomitant]
     Dates: start: 20090615, end: 20090618

REACTIONS (2)
  - ARTHRALGIA [None]
  - HYPOAESTHESIA [None]
